FAERS Safety Report 12950360 (Version 2)
Quarter: 2016Q4

REPORT INFORMATION
  Report Type: Spontaneous
  Country: FR (occurrence: FR)
  Receive Date: 20161116
  Receipt Date: 20161117
  Transmission Date: 20170207
  Serious: Yes (Other)
  Sender: FDA-Public Use
  Company Number: FR-EISAI MEDICAL RESEARCH-EC-2016-022225

PATIENT
  Sex: Female

DRUGS (8)
  1. SINGULAIR [Suspect]
     Active Substance: MONTELUKAST SODIUM
     Indication: FOETAL EXPOSURE DURING PREGNANCY
     Dosage: UNKNOWN
     Route: 064
  2. AERIUS [Suspect]
     Active Substance: DESLORATADINE
     Indication: FOETAL EXPOSURE DURING PREGNANCY
     Route: 064
  3. ORELOX [Suspect]
     Active Substance: CEFPODOXIME
     Indication: FOETAL EXPOSURE DURING PREGNANCY
     Route: 064
  4. ZITHROMAX [Suspect]
     Active Substance: AZITHROMYCIN DIHYDRATE
     Indication: FOETAL EXPOSURE DURING PREGNANCY
     Route: 064
  5. PARIET [Suspect]
     Active Substance: RABEPRAZOLE SODIUM
     Indication: FOETAL EXPOSURE DURING PREGNANCY
     Route: 064
  6. CREON [Suspect]
     Active Substance: PANCRELIPASE AMYLASE\PANCRELIPASE LIPASE\PANCRELIPASE PROTEASE
     Indication: FOETAL EXPOSURE DURING PREGNANCY
     Route: 064
  7. VENTILASTIN [Suspect]
     Active Substance: ALBUTEROL SULFATE
     Indication: FOETAL EXPOSURE DURING PREGNANCY
     Dosage: UNKNOWN
     Route: 064
  8. TOBI [Suspect]
     Active Substance: TOBRAMYCIN
     Indication: FOETAL EXPOSURE DURING PREGNANCY
     Dosage: 300 MG/5ML
     Route: 064

REACTIONS (4)
  - Foetal growth restriction [Unknown]
  - Intestinal ischaemia [Unknown]
  - Placental transfusion syndrome [Unknown]
  - Foetal exposure during pregnancy [Unknown]

NARRATIVE: CASE EVENT DATE: 2014
